FAERS Safety Report 10881343 (Version 1)
Quarter: 2015Q1

REPORT INFORMATION
  Report Type: Report from Study
  Country: BR (occurrence: BR)
  Receive Date: 20150303
  Receipt Date: 20150303
  Transmission Date: 20150721
  Serious: Yes (Hospitalization, Other)
  Sender: FDA-Public Use
  Company Number: PHHY2015BR021993

PATIENT
  Age: 77 Year
  Sex: Male
  Weight: 70 kg

DRUGS (2)
  1. EXELON PATCH [Suspect]
     Active Substance: RIVASTIGMINE
     Indication: SENILE DEMENTIA
     Dosage: 9.5 MG, QD ONE PATCH OF 10 CM2, DAILY
     Route: 062
  2. DIOVAN AMLO [Suspect]
     Active Substance: AMLODIPINE\VALSARTAN
     Indication: HYPERTENSION
     Dosage: UNK OT, QD (WHEN HIS BLOOD PRESSURE WAS 15 -UNITS UNKNOWN-, IF IT WAS BELOW HE SHOULD NOT USE IT)
     Route: 065

REACTIONS (10)
  - Lung infection [Unknown]
  - Neck mass [Unknown]
  - Cardiomegaly [Unknown]
  - Intestinal obstruction [Recovered/Resolved]
  - Cerebral ischaemia [Recovered/Resolved]
  - Pneumonia [Recovered/Resolved]
  - Aphasia [Unknown]
  - Gait disturbance [Not Recovered/Not Resolved]
  - Infarction [Unknown]
  - Dysphagia [Unknown]

NARRATIVE: CASE EVENT DATE: 201104
